FAERS Safety Report 6203705-5 (Version None)
Quarter: 2009Q2

REPORT INFORMATION
  Report Type: 
  Country: None (occurrence: None)
  Receive Date: 20090526
  Receipt Date: 20090526
  Transmission Date: 20091009
  Serious: Yes (Other)
  Sender: FDA-Public Use
  Company Number: None

PATIENT
  Age: 42 Year
  Sex: Male
  Weight: 103.4201 kg

DRUGS (1)
  1. NEXIUM [Suspect]
     Indication: ULCER
     Dosage: 40MG ONCE DAILY PO
     Route: 048
     Dates: start: 20090522, end: 20090523

REACTIONS (3)
  - ANXIETY [None]
  - CONDITION AGGRAVATED [None]
  - DEPRESSION [None]
